FAERS Safety Report 6897520-7 (Version None)
Quarter: 2010Q3

REPORT INFORMATION
  Report Type: 
  Country: None (occurrence: None)
  Receive Date: 20100802
  Receipt Date: 20070712
  Transmission Date: 20110219
  Serious: Yes (Other)
  Sender: FDA-Public Use
  Company Number: US-PFIZER INC-2007049039

PATIENT
  Sex: Female
  Weight: 104.3 kg

DRUGS (2)
  1. LYRICA [Suspect]
     Indication: PAIN
     Dates: start: 20070501
  2. ACETYLSALICYLIC ACID SRT [Concomitant]

REACTIONS (2)
  - OEDEMA PERIPHERAL [None]
  - WEIGHT INCREASED [None]
